FAERS Safety Report 6020464-X (Version None)
Quarter: 2008Q4

REPORT INFORMATION
  Report Type: 
  Country: None (occurrence: None)
  Receive Date: 20081226
  Receipt Date: 20081216
  Transmission Date: 20090506
  Serious: Yes (Hospitalization)
  Sender: FDA-Public Use
  Company Number: JP-ABBOTT-08P-087-0468753-00

PATIENT
  Age: 34 Year
  Sex: Male

DRUGS (2)
  1. FENOFIBRATE [Suspect]
     Indication: HYPERLIPIDAEMIA
     Dosage: 100 MG DAILY
     Route: 048
     Dates: start: 20080619, end: 20080722
  2. BEZAFIBRATE [Concomitant]
     Indication: DRUG USE FOR UNKNOWN INDICATION
     Route: 065
     Dates: start: 20080401, end: 20080601

REACTIONS (5)
  - HEADACHE [None]
  - HEPATIC FUNCTION ABNORMAL [None]
  - MALAISE [None]
  - NAUSEA [None]
  - PYREXIA [None]
